FAERS Safety Report 26166035 (Version 1)
Quarter: 2025Q4

REPORT INFORMATION
  Report Type: Spontaneous
  Country: GB (occurrence: GB)
  Receive Date: 20251216
  Receipt Date: 20251216
  Transmission Date: 20260117
  Serious: Yes (Other)
  Sender: ELI LILLY AND COMPANY
  Company Number: None

PATIENT
  Age: 64 Year
  Sex: Female
  Weight: 75 kg

DRUGS (5)
  1. MOUNJARO [Suspect]
     Active Substance: TIRZEPATIDE
     Indication: Latent autoimmune diabetes in adults
     Dosage: 10 MG, WEEKLY (1/W)
     Route: 065
     Dates: start: 20250303
  2. MOUNJARO [Suspect]
     Active Substance: TIRZEPATIDE
     Indication: Latent autoimmune diabetes in adults
     Dosage: 10 MG, WEEKLY (1/W)
     Route: 065
     Dates: start: 20250303
  3. MOUNJARO [Suspect]
     Active Substance: TIRZEPATIDE
     Indication: Latent autoimmune diabetes in adults
     Dosage: UNK, UNKNOWN
     Route: 065
  4. FIASP [Concomitant]
     Active Substance: INSULIN ASPART
     Indication: Diabetes mellitus
  5. TRESIBA [Concomitant]
     Active Substance: INSULIN DEGLUDEC
     Indication: Diabetes mellitus

REACTIONS (2)
  - Psoriasis [Not Recovered/Not Resolved]
  - Off label use [Unknown]
